FAERS Safety Report 20653000 (Version 1)
Quarter: 2022Q1

REPORT INFORMATION
  Report Type: Spontaneous
  Country: BE (occurrence: BE)
  Receive Date: 20220330
  Receipt Date: 20220330
  Transmission Date: 20220424
  Serious: Yes (Other)
  Sender: FDA-Public Use
  Company Number: BE-PRA-001184

PATIENT
  Age: 46 Year
  Sex: Male

DRUGS (1)
  1. METHYLPREDNISOLONE [Suspect]
     Active Substance: METHYLPREDNISOLONE
     Indication: Optic ischaemic neuropathy
     Route: 042

REACTIONS (3)
  - Optic atrophy [Unknown]
  - Visual field defect [Unknown]
  - Product use in unapproved indication [Unknown]
